FAERS Safety Report 4618692-0 (Version None)
Quarter: 2005Q1

REPORT INFORMATION
  Report Type: 
  Country: None (occurrence: None)
  Receive Date: 20050324
  Receipt Date: 20050309
  Transmission Date: 20050727
  Serious: Yes (Hospitalization, Other)
  Sender: FDA-Public Use
  Company Number: US_0403101365

PATIENT
  Age: 86 Year
  Sex: Female

DRUGS (1)
  1. FORTEO [Suspect]
     Indication: OSTEOPOROSIS
     Dates: start: 20031231

REACTIONS (3)
  - FRACTURE NONUNION [None]
  - INJECTION SITE DISCOLOURATION [None]
  - PHARMACEUTICAL PRODUCT COMPLAINT [None]
